FAERS Safety Report 14917365 (Version 4)
Quarter: 2018Q4

REPORT INFORMATION
  Report Type: Report from Study
  Country: None (occurrence: BE)
  Receive Date: 20180521
  Receipt Date: 20181001
  Transmission Date: 20190204
  Serious: Yes (Hospitalization)
  Sender: FDA-Public Use
  Company Number: BE-ABBVIE-18K-013-2357866-00

PATIENT
  Sex: Female

DRUGS (11)
  1. DUODOPA [Suspect]
     Active Substance: CARBIDOPA\LEVODOPA
     Dosage: MD=2.7ML??CD=3.6ML/HR DURING 16HRS ??ED=3.5ML
     Route: 050
     Dates: start: 20170713
  2. DUODOPA [Suspect]
     Active Substance: CARBIDOPA\LEVODOPA
     Indication: PARKINSON^S DISEASE
     Dosage: MD=7ML??CD=3.9ML/HR DURING 16HRS ??ED=3ML
     Route: 050
     Dates: start: 20130610, end: 20130713
  3. DUODOPA [Suspect]
     Active Substance: CARBIDOPA\LEVODOPA
     Dosage: MD=3ML?CD=3.4ML/HR DURING 16HRS?ED=3ML?ND=2.3ML/HR DURING 8HRS
     Route: 050
     Dates: start: 20180924
  4. ASAFLOW [Concomitant]
     Active Substance: ASPIRIN
  5. DUODOPA [Suspect]
     Active Substance: CARBIDOPA\LEVODOPA
     Dosage: MD=2.5ML?CD=3.4ML/HR DURING 16HRS?ED=3.5ML?ND=2.3ML/HR DURING 8HRS
     Route: 050
     Dates: start: 20180625, end: 20180924
  6. DUODOPA [Suspect]
     Active Substance: CARBIDOPA\LEVODOPA
     Dosage: MD=2.5ML?CD=3.4ML/HR DURING 16HRS?ED=3ML?ND=2.3ML/HR DURING 8HRS
     Route: 050
     Dates: start: 20180618, end: 20180625
  7. STALEVO [Concomitant]
     Active Substance: CARBIDOPA\ENTACAPONE\LEVODOPA
     Dosage: FORM STRENGTH: 150MG/37.5MG/200MG
     Route: 048
  8. ASAFLOW [Concomitant]
     Active Substance: ASPIRIN
     Indication: PRODUCT USED FOR UNKNOWN INDICATION
  9. DUODOPA [Suspect]
     Active Substance: CARBIDOPA\LEVODOPA
     Route: 050
     Dates: start: 20180524, end: 20180618
  10. STALEVO [Concomitant]
     Active Substance: CARBIDOPA\ENTACAPONE\LEVODOPA
     Indication: PARKINSON^S DISEASE
     Dosage: FORM STRENGTH: 150MG/37.5MG/200MG
     Route: 048
  11. DUODOPA [Suspect]
     Active Substance: CARBIDOPA\LEVODOPA
     Dosage: DOSES CONTINUOUSLY MONITORED AND ADAPTED
     Route: 050
     Dates: start: 20130713, end: 20170713

REACTIONS (4)
  - Freezing phenomenon [Unknown]
  - Off label use [Unknown]
  - Chest discomfort [Unknown]
  - On and off phenomenon [Not Recovered/Not Resolved]
